FAERS Safety Report 5884105-4 (Version None)
Quarter: 2008Q3

REPORT INFORMATION
  Report Type: 
  Country: None (occurrence: None)
  Receive Date: 20080910
  Receipt Date: 20080825
  Transmission Date: 20090109
  Serious: Yes (Hospitalization)
  Sender: FDA-Public Use
  Company Number: 002#8#2008-00648

PATIENT
  Age: 63 Year
  Sex: Female

DRUGS (7)
  1. OMEPRAZOLE [Suspect]
     Indication: DYSPHAGIA
     Dosage: 1 IN 1 D, ORAL
     Route: 048
  2. OMEPRAZOLE [Suspect]
     Indication: GASTROOESOPHAGEAL REFLUX DISEASE
     Dosage: 1 IN 1 D, ORAL
     Route: 048
  3. OMEPRAZOLE [Suspect]
     Indication: OESOPHAGEAL STENOSIS
     Dosage: 1 IN 1 D, ORAL
     Route: 048
  4. CILAZAPRIL [Concomitant]
  5. HYDROCHLOROTHIAZIDE [Concomitant]
  6. FLUTICASONE PROPIONATE [Concomitant]
  7. SALBUTAMOL [Concomitant]

REACTIONS (6)
  - CHRONIC OBSTRUCTIVE PULMONARY DISEASE [None]
  - CONDITION AGGRAVATED [None]
  - DISEASE COMPLICATION [None]
  - GRAND MAL CONVULSION [None]
  - HYPOCALCAEMIA [None]
  - HYPOMAGNESAEMIA [None]
